FAERS Safety Report 7978954-6 (Version None)
Quarter: 2011Q4

REPORT INFORMATION
  Report Type: 
  Country: None (occurrence: None)
  Receive Date: 20111205
  Receipt Date: 20111129
  Transmission Date: 20120403
  Serious: Yes (Hospitalization, Other)
  Sender: FDA-Public Use
  Company Number: 2009SP023508

PATIENT
  Age: 34 Year
  Sex: Female

DRUGS (1)
  1. NUVARING [Suspect]
     Indication: CONTRACEPTION
     Dates: start: 20030101, end: 20081208

REACTIONS (20)
  - PULMONARY EMBOLISM [None]
  - OEDEMA PERIPHERAL [None]
  - HERNIA [None]
  - MACULAR DEGENERATION [None]
  - BACK PAIN [None]
  - LIGAMENT RUPTURE [None]
  - TENOSYNOVITIS [None]
  - SNORING [None]
  - MALAISE [None]
  - ROTATOR CUFF SYNDROME [None]
  - JOINT INJURY [None]
  - FALL [None]
  - VOMITING [None]
  - SOMNOLENCE [None]
  - CATHETER SITE RELATED REACTION [None]
  - ASTHMA [None]
  - MIGRAINE [None]
  - ARTHRALGIA [None]
  - NAUSEA [None]
  - SLEEP APNOEA SYNDROME [None]
